FAERS Safety Report 13816987 (Version 1)
Quarter: 2017Q3

REPORT INFORMATION
  Report Type: Spontaneous
  Country: US (occurrence: US)
  Receive Date: 20170731
  Receipt Date: 20170731
  Transmission Date: 20171127
  Serious: No
  Sender: FDA-Public Use
  Company Number: US-JNJFOC-20170514576

PATIENT
  Age: 30 Year
  Sex: Male

DRUGS (4)
  1. PREZCOBIX [Suspect]
     Active Substance: COBICISTAT\DARUNAVIR ETHANOLATE
     Indication: HIV INFECTION
     Dosage: START DATE: 01-MAY UNSPECIFIED YEAR
     Route: 048
     Dates: start: 20170501, end: 20170510
  2. BENZATHINE BENZYLPENICILLIN [Suspect]
     Active Substance: PENICILLIN G BENZATHINE
     Indication: SYPHILIS
     Route: 065
     Dates: start: 20170503, end: 2017
  3. EMTRICITABINE W/TENOFOVIR [Suspect]
     Active Substance: EMTRICITABINE\TENOFOVIR DISOPROXIL
     Indication: HIV INFECTION
     Dosage: START DATE: 01-MAY UNSPECIFIED YEAR
     Route: 065
     Dates: start: 20170501
  4. ZYRTEC [Concomitant]
     Active Substance: CETIRIZINE HYDROCHLORIDE
     Indication: SEASONAL ALLERGY
     Route: 065

REACTIONS (1)
  - Dermatitis allergic [Recovered/Resolved]

NARRATIVE: CASE EVENT DATE: 20170503
